FAERS Safety Report 4963410-X (Version None)
Quarter: 2006Q1

REPORT INFORMATION
  Report Type: 
  Country: None (occurrence: None)
  Receive Date: 20060329
  Receipt Date: 20060316
  Transmission Date: 20060701
  Serious: Yes (Other)
  Sender: FDA-Public Use
  Company Number: 2006036406

PATIENT
  Age: 45 Year
  Sex: Male
  Weight: 86.1834 kg

DRUGS (4)
  1. VIAGRA [Suspect]
     Indication: ERECTILE DYSFUNCTION
     Dosage: 25 MG (25 MG, 1 AS NECESSARY), ORAL
     Route: 048
     Dates: start: 20030101
  2. NEURONTIN [Concomitant]
  3. PERCOCET (XOYCODONE HYDROCHLORIDE, PARACETAMOL) [Concomitant]
  4. GLUCOPHAGE [Concomitant]

REACTIONS (2)
  - DRUG INEFFECTIVE [None]
  - LEUKAEMIA [None]
